FAERS Safety Report 13192556 (Version 3)
Quarter: 2017Q1

REPORT INFORMATION
  Report Type: Spontaneous
  Country: EG (occurrence: EG)
  Receive Date: 20170207
  Receipt Date: 20170221
  Transmission Date: 20170428
  Serious: Yes (Death, Hospitalization)
  Sender: FDA-Public Use
  Company Number: EG-PFIZER INC-2017051689

PATIENT

DRUGS (2)
  1. SUTENT [Suspect]
     Active Substance: SUNITINIB MALATE
     Indication: METASTATIC RENAL CELL CARCINOMA
     Dosage: 12.5 MG, UNK
     Route: 048
  2. SUTENT [Suspect]
     Active Substance: SUNITINIB MALATE
     Dosage: 4 TABLETS DAILY
     Route: 048

REACTIONS (4)
  - Vomiting [Unknown]
  - Fatigue [Unknown]
  - Overdose [Fatal]
  - Internal haemorrhage [Fatal]
